FAERS Safety Report 12459324 (Version 1)
Quarter: 2016Q2

REPORT INFORMATION
  Report Type: Spontaneous
  Country: US (occurrence: None)
  Receive Date: 20160610
  Receipt Date: 20160610
  Transmission Date: 20160815
  Serious: No
  Sender: FDA-Public Use
  Company Number: None

PATIENT
  Age: 50 Year
  Sex: Female

DRUGS (1)
  1. COSENTYX [Suspect]
     Active Substance: SECUKINUMAB
     Dosage: 300MG WEEKLY FOR 5 WEEKS THEN EVERY 4 WEEKS
     Route: 058
     Dates: start: 20160514

REACTIONS (3)
  - Psoriasis [None]
  - Eye haemorrhage [None]
  - Ocular hyperaemia [None]

NARRATIVE: CASE EVENT DATE: 20160605
